FAERS Safety Report 8218863-0 (Version None)
Quarter: 2012Q1

REPORT INFORMATION
  Report Type: 
  Country: None (occurrence: None)
  Receive Date: 20120319
  Receipt Date: 20120314
  Transmission Date: 20120608
  Serious: Yes (Death, Other)
  Sender: FDA-Public Use
  Company Number: PHHY2012CA021145

PATIENT
  Sex: Male

DRUGS (13)
  1. SINEMET [Concomitant]
  2. VITAMIN D [Concomitant]
  3. ALTACE [Concomitant]
  4. CELEXA [Concomitant]
  5. DURAGESIC-100 [Concomitant]
  6. ZOLEDRONOC ACID [Suspect]
     Indication: OSTEOPOROSIS
     Dosage: 5 MG/100 ML
     Route: 042
     Dates: start: 20090610
  7. MIRAPEX [Concomitant]
  8. CALCIUM CARBONATE [Concomitant]
  9. SYNTHROID [Concomitant]
  10. RABEPRAZOLE SODIUM [Concomitant]
  11. ZOLEDRONOC ACID [Suspect]
     Dosage: UNK UKN, UNK
     Route: 042
     Dates: start: 20100616
  12. FLOMAX ^CSL^ [Concomitant]
  13. ZOLEDRONOC ACID [Suspect]
     Dosage: UNK UKN, UNK
     Route: 042
     Dates: start: 20110607

REACTIONS (2)
  - DEATH [None]
  - GENERAL PHYSICAL HEALTH DETERIORATION [None]
